FAERS Safety Report 17811066 (Version 3)
Quarter: 2020Q3

REPORT INFORMATION
  Report Type: Spontaneous
  Country: US (occurrence: US)
  Receive Date: 20200521
  Receipt Date: 20200706
  Transmission Date: 20201102
  Serious: Yes (Other)
  Sender: FDA-Public Use
  Company Number: US-GLENMARK PHARMACEUTICALS-2020GMK047828

PATIENT

DRUGS (2)
  1. ATOVAQUONE ORAL SUSPENSION USP [750 MG/5 ML] [Suspect]
     Active Substance: ATOVAQUONE
     Indication: LYME DISEASE
     Dosage: 5 MILLILITER, BID (2 TIMES DAILY)
     Route: 048
     Dates: start: 202001
  2. CLOTRIMAZOLE. [Concomitant]
     Active Substance: CLOTRIMAZOLE
     Indication: PRODUCT USED FOR UNKNOWN INDICATION
     Dosage: 10 MILLIGRAM, QD
     Route: 065

REACTIONS (5)
  - Tic [Not Recovered/Not Resolved]
  - Product use issue [Unknown]
  - Condition aggravated [Not Recovered/Not Resolved]
  - Drug ineffective for unapproved indication [Unknown]
  - Streptococcal infection [Unknown]

NARRATIVE: CASE EVENT DATE: 2020
